FAERS Safety Report 9775865 (Version 2)
Quarter: 2013Q4

REPORT INFORMATION
  Report Type: Report from Study
  Country: None (occurrence: US)
  Receive Date: 20131220
  Receipt Date: 20131220
  Transmission Date: 20140711
  Serious: Yes (Death, Hospitalization)
  Sender: FDA-Public Use
  Company Number: US-DENDREON CORPORATION-2013PROUSA03379

PATIENT
  Age: 87 Year
  Sex: Male
  Weight: 102.4 kg

DRUGS (24)
  1. SIPULEUCEL-T [Suspect]
     Indication: PROSTATE CANCER METASTATIC
     Dosage: 250 ML, SINGLE
     Route: 042
     Dates: start: 20120712, end: 20120712
  2. SIPULEUCEL-T [Suspect]
     Dosage: 250 ML, SINGLE
     Route: 042
     Dates: start: 20120726, end: 20120726
  3. SIPULEUCEL-T [Suspect]
     Dosage: 250 ML, SINGLE
     Route: 042
     Dates: start: 20120809, end: 20120809
  4. PREDNISONE [Concomitant]
     Indication: PROSTATE CANCER
     Dosage: UNK
     Dates: start: 20121108
  5. ENZALUTAMIDE [Concomitant]
     Indication: PROSTATE CANCER
     Dosage: UNK
     Dates: start: 20131025
  6. ALBUTEROL SULFATE [Concomitant]
     Indication: CHRONIC OBSTRUCTIVE PULMONARY DISEASE
     Dosage: 90 MCG, UNK
  7. ASCORBIC ACID (VITAMIN C), COMBINATIONS [Concomitant]
     Indication: SUPPLEMENTATION THERAPY
     Dosage: 500 MG, UNK
  8. ATENOLOL [Concomitant]
     Indication: HYPERTENSION
     Dosage: 25 UNK, UNK
  9. CALCIUM MAGNESIUM ZINC [Concomitant]
     Indication: SUPPLEMENTATION THERAPY
  10. CHOLECALCIFEROL [Concomitant]
     Indication: SUPPLEMENTATION THERAPY
     Dosage: 5000 UNITS, UNK
  11. FOLIC ACID [Concomitant]
     Indication: SUPPLEMENTATION THERAPY
     Dosage: 1 MG, UNK
  12. LEUPROLIDE [Concomitant]
     Indication: PROSTATE CANCER
     Dosage: 30 MG, UNK
  13. MULTIVITAMIN [Concomitant]
     Indication: SUPPLEMENTATION THERAPY
  14. ANTIOXIDANT [Concomitant]
     Indication: SUPPLEMENTATION THERAPY
  15. SIMVASTATIN [Concomitant]
     Indication: HYPERCHOLESTEROLAEMIA
     Dosage: 10 MG, UNK
  16. BENAZEPRIL [Concomitant]
     Indication: HYPERTENSION
     Dosage: 20 MG, UNK
  17. XGEVA [Concomitant]
     Indication: PROSTATE CANCER
     Dosage: 120 MG, UNK
     Dates: start: 20120111
  18. XGEVA [Concomitant]
     Indication: METASTASES TO BONE
  19. HYDROCHLOROTHIAZIDE [Concomitant]
     Indication: HYPERTENSION
     Dosage: 25 MG, UNK
  20. ASPIRIN [Concomitant]
     Indication: PROPHYLAXIS
     Dosage: 81 MG, UNK
  21. NAPROXEN SODIUM [Concomitant]
     Indication: PAIN
     Dosage: 200 UNK, UNK
  22. LOVENOX [Concomitant]
     Indication: THROMBOSIS
     Dosage: 80 MG, UNK
     Dates: start: 20131113, end: 20131212
  23. CANTRON [Concomitant]
     Indication: SUPPLEMENTATION THERAPY
  24. SUPER K [Concomitant]
     Indication: SUPPLEMENTATION THERAPY

REACTIONS (2)
  - Haemorrhagic stroke [Fatal]
  - Fall [Recovered/Resolved with Sequelae]
